FAERS Safety Report 17758800 (Version 1)
Quarter: 2020Q2

REPORT INFORMATION
  Report Type: Spontaneous
  Country: CA (occurrence: CA)
  Receive Date: 20200507
  Receipt Date: 20200507
  Transmission Date: 20200714
  Serious: Yes (Other)
  Sender: FDA-Public Use
  Company Number: CA-BAXTER-2020BAX009300

PATIENT

DRUGS (2)
  1. SEVOFLURANE. [Suspect]
     Active Substance: SEVOFLURANE
     Indication: INDUCTION OF ANAESTHESIA
     Dosage: DOSAGE FORM: LIQUID INHALATION
     Route: 055
  2. SUCCINYLCHOLINE CHLORIDE. [Suspect]
     Active Substance: SUCCINYLCHOLINE CHLORIDE
     Indication: INDUCTION OF ANAESTHESIA
     Dosage: DOSAGE FORM: LIQUID INTRAVENOUS
     Route: 065

REACTIONS (2)
  - Rhabdomyolysis [Unknown]
  - Cardiac arrest [Unknown]
